FAERS Safety Report 9586119 (Version 2)
Quarter: 2013Q4

REPORT INFORMATION
  Report Type: Spontaneous
  Country: GB (occurrence: GB)
  Receive Date: 20131003
  Receipt Date: 20131003
  Transmission Date: 20140711
  Serious: Yes (Other)
  Sender: FDA-Public Use
  Company Number: GB-JNJFOC-20130610877

PATIENT
  Age: 42 Year
  Sex: Female
  Weight: 67 kg

DRUGS (11)
  1. XEPLION [Suspect]
     Indication: BIPOLAR DISORDER
     Route: 030
     Dates: start: 20121217, end: 201212
  2. XEPLION [Suspect]
     Indication: BIPOLAR DISORDER
     Route: 030
     Dates: start: 201212, end: 20130703
  3. EPILIM CHRONO [Suspect]
     Indication: BIPOLAR DISORDER
     Route: 065
  4. EPILIM CHRONO [Suspect]
     Indication: BIPOLAR DISORDER
     Route: 065
     Dates: start: 201206
  5. DIAZEPAM [Concomitant]
     Route: 065
  6. OLANZAPINE [Concomitant]
     Route: 065
  7. OMEPRAZOLE [Concomitant]
     Route: 065
  8. BISOPROLOL [Concomitant]
     Route: 065
  9. CALCICHEW D3 FORTE [Concomitant]
     Route: 065
  10. FERROUS SULPHATE [Concomitant]
     Route: 065
  11. BISOPROLOL [Concomitant]
     Route: 065

REACTIONS (6)
  - Neutropenia [Recovered/Resolved]
  - Leukopenia [Recovered/Resolved]
  - Amenorrhoea [Unknown]
  - Blood prolactin increased [Unknown]
  - Thrombocytopenia [Recovered/Resolved]
  - Off label use [Unknown]
